FAERS Safety Report 24030717 (Version 2)
Quarter: 2024Q3

REPORT INFORMATION
  Report Type: Report from Study
  Country: CA (occurrence: CA)
  Receive Date: 20240628
  Receipt Date: 20240703
  Transmission Date: 20241016
  Serious: Yes (Hospitalization, Other)
  Sender: HLS THERAPEUTICS
  Company Number: CA-HLS-202401643

PATIENT
  Age: 52 Year
  Sex: Male

DRUGS (6)
  1. CLOZARIL [Suspect]
     Active Substance: CLOZAPINE
     Indication: Product used for unknown indication
     Dosage: TAKING 200 MG OF CLOZARIL
     Route: 048
     Dates: start: 20160128
  2. CLOZARIL [Suspect]
     Active Substance: CLOZAPINE
     Indication: Product used for unknown indication
     Dosage: DAILY AT BEDTIME
     Route: 048
  3. DOXYCYCLINE [Concomitant]
     Active Substance: DOXYCYCLINE\DOXYCYCLINE HYCLATE
     Indication: Syphilis
     Dosage: 100 MG TWICE DAILY
     Route: 065
     Dates: end: 20240505
  4. ARIPIPRAZOLE [Concomitant]
     Active Substance: ARIPIPRAZOLE
     Indication: Product used for unknown indication
     Route: 065
  5. ROSUVASTATIN CALCIUM [Concomitant]
     Active Substance: ROSUVASTATIN CALCIUM
     Indication: Product used for unknown indication
     Route: 065
  6. PANTOPRAZOLE SODIUM [Concomitant]
     Active Substance: PANTOPRAZOLE SODIUM
     Indication: Product used for unknown indication
     Route: 065

REACTIONS (12)
  - Genital herpes [Unknown]
  - Barrett^s oesophagus [Unknown]
  - Myocarditis [Unknown]
  - C-reactive protein increased [Unknown]
  - Haematocrit decreased [Unknown]
  - Hepatitis C [Unknown]
  - HIV infection [Unknown]
  - Mania [Unknown]
  - Neurosyphilis [Unknown]
  - Anal fistula [Unknown]
  - Schizoaffective disorder bipolar type [Unknown]
  - Troponin increased [Unknown]

NARRATIVE: CASE EVENT DATE: 20180101
